FAERS Safety Report 6459930-1 (Version None)
Quarter: 2009Q4

REPORT INFORMATION
  Report Type: 
  Country: None (occurrence: None)
  Receive Date: 20091129
  Receipt Date: 20091117
  Transmission Date: 20100525
  Serious: Yes (Other)
  Sender: FDA-Public Use
  Company Number: PHHY2009CA49862

PATIENT

DRUGS (1)
  1. ALISKIREN ALI+ [Suspect]
     Dosage: UNK

REACTIONS (1)
  - URINE ALBUMIN/CREATININE RATIO INCREASED [None]
